FAERS Safety Report 22388904 (Version 5)
Quarter: 2024Q1

REPORT INFORMATION
  Report Type: Report from Study
  Country: CA (occurrence: CA)
  Receive Date: 20230531
  Receipt Date: 20240206
  Transmission Date: 20240410
  Serious: Yes (Other)
  Sender: FDA-Public Use
  Company Number: CA-BAUSCH-BL-2023-007662

PATIENT
  Sex: Female
  Weight: 115.65 kg

DRUGS (5)
  1. CONTRAVE [Suspect]
     Active Substance: BUPROPION HYDROCHLORIDE\NALTREXONE HYDROCHLORIDE
     Indication: Weight control
     Dosage: 90/8MG
     Route: 048
     Dates: start: 2023, end: 2023
  2. CONTRAVE [Suspect]
     Active Substance: BUPROPION HYDROCHLORIDE\NALTREXONE HYDROCHLORIDE
     Dosage: 90/8MG, 2 TABS BID (2 DOSAGE FORMS,1 IN 12 HR)
     Route: 048
     Dates: start: 20230316, end: 2023
  3. CONTRAVE [Suspect]
     Active Substance: BUPROPION HYDROCHLORIDE\NALTREXONE HYDROCHLORIDE
     Dosage: 90/8MG (SLOWLY REDUCED BY 1 TAB PER WEEK)
     Route: 048
     Dates: start: 2023, end: 2023
  4. CONTRAVE [Suspect]
     Active Substance: BUPROPION HYDROCHLORIDE\NALTREXONE HYDROCHLORIDE
     Dosage: 90/8MG, 1 TAB DAILY
     Route: 048
     Dates: start: 2023, end: 202312
  5. CANNABIDIOL\HERBALS [Concomitant]
     Active Substance: CANNABIDIOL\HERBALS
     Indication: Arthritis
     Dosage: UNK

REACTIONS (14)
  - Arthritis [Recovered/Resolved]
  - Food poisoning [Recovered/Resolved]
  - Hunger [Recovering/Resolving]
  - Hypoacusis [Not Recovered/Not Resolved]
  - Food aversion [Recovered/Resolved]
  - Weight decreased [Unknown]
  - Haemorrhoids [Recovered/Resolved]
  - Flatulence [Recovered/Resolved]
  - Gastrointestinal pain [Recovered/Resolved]
  - Constipation [Recovered/Resolved]
  - Tinnitus [Recovering/Resolving]
  - Therapeutic response unexpected [Unknown]
  - Inappropriate schedule of product administration [Unknown]
  - Contraindicated product prescribed [Unknown]

NARRATIVE: CASE EVENT DATE: 20230101
